FAERS Safety Report 14166731 (Version 1)
Quarter: 2017Q4

REPORT INFORMATION
  Report Type: Spontaneous
  Country: CN (occurrence: CN)
  Receive Date: 20171107
  Receipt Date: 20171107
  Transmission Date: 20180321
  Serious: Yes (Hospitalization)
  Sender: FDA-Public Use
  Company Number: CN-BAYER-2017-207831

PATIENT
  Age: 52 Year
  Sex: Male

DRUGS (8)
  1. UREA. [Concomitant]
     Active Substance: UREA
     Dosage: UNK
     Route: 061
  2. NEXAVAR [Suspect]
     Active Substance: SORAFENIB
     Indication: THYROID CANCER
     Dosage: 200 MG, BID
     Route: 048
     Dates: start: 20170512, end: 20171017
  3. ESTER C [CALCIUM ASCORBATE] [Concomitant]
     Dosage: 9 DF, TID
  4. FUCIDIN [Concomitant]
     Active Substance: FUSIDIC ACID
     Dosage: UNK
     Route: 061
  5. NEXAVAR [Suspect]
     Active Substance: SORAFENIB
     Indication: METASTASIS
  6. CENTRUM [Concomitant]
     Active Substance: VITAMINS
     Dosage: 1 DF, QD
     Route: 048
  7. EUTHYROX [Concomitant]
     Active Substance: LEVOTHYROXINE SODIUM
     Dosage: 137.5 ?G, UNK
  8. COENZYME Q10 [Concomitant]
     Active Substance: UBIDECARENONE
     Dosage: 10 MG, TID (TAKEN BEFORE MEALS)

REACTIONS (18)
  - Hypothyroidism [None]
  - Skin exfoliation [Not Recovered/Not Resolved]
  - Gait disturbance [Not Recovered/Not Resolved]
  - Decreased appetite [Not Recovered/Not Resolved]
  - Diarrhoea [None]
  - Erythema [Not Recovered/Not Resolved]
  - Peripheral swelling [Not Recovered/Not Resolved]
  - Myalgia [Not Recovered/Not Resolved]
  - Blood fibrinogen increased [None]
  - Dysphonia [None]
  - Weight decreased [None]
  - Blood thyroid stimulating hormone increased [None]
  - Palmar-plantar erythrodysaesthesia syndrome [Not Recovered/Not Resolved]
  - Skin disorder [Not Recovered/Not Resolved]
  - Blood triglycerides abnormal [None]
  - Asthenia [None]
  - Pain in extremity [Not Recovered/Not Resolved]
  - Oral pain [None]

NARRATIVE: CASE EVENT DATE: 20170530
